FAERS Safety Report 26106908 (Version 1)
Quarter: 2025Q4

REPORT INFORMATION
  Report Type: Spontaneous
  Country: EU (occurrence: EU)
  Receive Date: 20251201
  Receipt Date: 20251201
  Transmission Date: 20260118
  Serious: Yes (Death, Other)
  Sender: AMGEN
  Company Number: EU-AMGEN-SVNSP2025234241

PATIENT

DRUGS (1)
  1. ECULIZUMAB [Suspect]
     Active Substance: ECULIZUMAB
     Indication: Atypical haemolytic uraemic syndrome
     Dosage: UNK
     Route: 065

REACTIONS (4)
  - Death [Fatal]
  - Haemolytic uraemic syndrome [Unknown]
  - Thrombotic microangiopathy [Unknown]
  - Therapy non-responder [Unknown]
